FAERS Safety Report 23668878 (Version 1)
Quarter: 2024Q1

REPORT INFORMATION
  Report Type: Spontaneous
  Country: FR (occurrence: FR)
  Receive Date: 20240325
  Receipt Date: 20240325
  Transmission Date: 20240410
  Serious: Yes (Other)
  Sender: FDA-Public Use
  Company Number: None

PATIENT
  Age: 55 Year
  Sex: Male

DRUGS (1)
  1. SPRYCEL [Suspect]
     Active Substance: DASATINIB
     Indication: Chronic myeloid leukaemia
     Route: 048
     Dates: start: 20230417, end: 20231020

REACTIONS (3)
  - Eczema [Recovering/Resolving]
  - Folliculitis [Recovering/Resolving]
  - Erythromelalgia [Not Recovered/Not Resolved]

NARRATIVE: CASE EVENT DATE: 20230101
